FAERS Safety Report 22644252 (Version 1)
Quarter: 2023Q2

REPORT INFORMATION
  Report Type: Report from Study
  Country: US (occurrence: US)
  Receive Date: 20230627
  Receipt Date: 20230627
  Transmission Date: 20230722
  Serious: Yes (Death, Other)
  Sender: FDA-Public Use
  Company Number: US-GILEAD-2023-0633687

PATIENT
  Age: 65 Year
  Sex: Male

DRUGS (1)
  1. SOFOSBUVIR\VELPATASVIR [Suspect]
     Active Substance: SOFOSBUVIR\VELPATASVIR
     Indication: Hepatitis C
     Dosage: 1 DOSAGE FORM, QD/400/100MG 1 TABLET BY MOUTH DAILY
     Route: 048
     Dates: start: 20230125

REACTIONS (1)
  - Death [Fatal]

NARRATIVE: CASE EVENT DATE: 20230620
